FAERS Safety Report 6600695-8 (Version None)
Quarter: 2010Q1

REPORT INFORMATION
  Report Type: 
  Country: None (occurrence: None)
  Receive Date: 20100224
  Receipt Date: 20100218
  Transmission Date: 20100710
  Serious: Yes (Hospitalization)
  Sender: FDA-Public Use
  Company Number: US-ABBOTT-10P-163-0627736-00

PATIENT
  Sex: Female
  Weight: 63.56 kg

DRUGS (2)
  1. HUMIRA [Suspect]
     Indication: CROHN'S DISEASE
     Route: 058
     Dates: start: 20090218
  2. HUMIRA [Suspect]
     Route: 058
     Dates: start: 20091001

REACTIONS (7)
  - CONDITION AGGRAVATED [None]
  - ILEAL ULCER [None]
  - IMPAIRED HEALING [None]
  - INTESTINAL STENOSIS [None]
  - NASOPHARYNGITIS [None]
  - PAIN [None]
  - WOUND INFECTION [None]
